FAERS Safety Report 5961876-X (Version None)
Quarter: 2008Q4

REPORT INFORMATION
  Report Type: 
  Country: None (occurrence: None)
  Receive Date: 20081121
  Receipt Date: 20080811
  Transmission Date: 20090506
  Serious: No
  Sender: FDA-Public Use
  Company Number: US-BRISTOL-MYERS SQUIBB COMPANY-14297337

PATIENT
  Age: 88 Year
  Sex: Female
  Weight: 66 kg

DRUGS (4)
  1. AVALIDE [Suspect]
     Dosage: 1 DOSAGE FORM=IRBESARTAN 300 MG/HYDROCHLOROTHIAZIDE 12.5 MG
  2. PLAVIX [Concomitant]
  3. XOPENEX [Concomitant]
  4. ADVAIR HFA [Concomitant]

REACTIONS (1)
  - DYSPNOEA [None]
